FAERS Safety Report 15508024 (Version 2)
Quarter: 2018Q4

REPORT INFORMATION
  Report Type: Spontaneous
  Country: US (occurrence: US)
  Receive Date: 20181016
  Receipt Date: 20181122
  Transmission Date: 20190205
  Serious: No
  Sender: FDA-Public Use
  Company Number: US-ASTRAZENECA-2018SF23316

PATIENT
  Sex: Female
  Weight: 66.2 kg

DRUGS (1)
  1. BYDUREON [Suspect]
     Active Substance: EXENATIDE
     Indication: BLOOD GLUCOSE INCREASED
     Route: 065
     Dates: start: 201801

REACTIONS (3)
  - Device leakage [Unknown]
  - Weight decreased [Unknown]
  - Wrong technique in product usage process [Unknown]
